FAERS Safety Report 12691804 (Version 1)
Quarter: 2016Q3

REPORT INFORMATION
  Report Type: Spontaneous
  Country: US (occurrence: US)
  Receive Date: 20160826
  Receipt Date: 20160826
  Transmission Date: 20161109
  Serious: Yes (Hospitalization, Other)
  Sender: FDA-Public Use
  Company Number: US-PRINSTON PHARMACEUTICAL INC.-2016PRN00066

PATIENT
  Age: 73 Year
  Sex: Female
  Weight: 48.53 kg

DRUGS (9)
  1. LISINOPRIL. [Suspect]
     Active Substance: LISINOPRIL
     Indication: HYPERTENSION
     Dosage: 10 MG, ONCE
     Route: 048
     Dates: start: 20160406, end: 20160406
  2. COLLAGEN SUPPORT [Concomitant]
     Dosage: UNK, 1X/DAY
  3. FISH OIL [Concomitant]
     Active Substance: FISH OIL
     Dosage: 1000 MG, 1X/DAY
  4. SUPER B [Concomitant]
     Dosage: UNK, 1X/DAY
  5. ACIDOPHILUS 5 MILLION [Concomitant]
     Dosage: UNK, 1X/DAY
  6. ZYRTEC [Concomitant]
     Active Substance: CETIRIZINE HYDROCHLORIDE
     Dosage: 10 MG, 1X/DAY
  7. VITAMIN E 400 [Concomitant]
     Dosage: UNK, 1X/DAY
  8. CRANBERRY. [Concomitant]
     Active Substance: CRANBERRY
     Dosage: 2 TABLETS, 1X/DAY
  9. PREMARIN [Concomitant]
     Active Substance: ESTROGENS, CONJUGATED
     Dosage: 0.625 MG, 1X/DAY

REACTIONS (4)
  - Hypersensitivity [Recovered/Resolved]
  - Pharyngeal erythema [Not Recovered/Not Resolved]
  - Oropharyngeal pain [Not Recovered/Not Resolved]
  - Dysphonia [Not Recovered/Not Resolved]

NARRATIVE: CASE EVENT DATE: 201604
